FAERS Safety Report 16762370 (Version 1)
Quarter: 2019Q3

REPORT INFORMATION
  Report Type: Spontaneous
  Country: CA (occurrence: CA)
  Receive Date: 20190831
  Receipt Date: 20190831
  Transmission Date: 20191005
  Serious: Yes (Hospitalization, Disabling, Other)
  Sender: FDA-Public Use
  Company Number: CA-TEVA-2019-CA-1100338

PATIENT
  Age: 6 Year
  Sex: Female
  Weight: 26 kg

DRUGS (10)
  1. CYTARABINE INJECTION [Concomitant]
     Active Substance: CYTARABINE
  2. METHYLPREDNISOLONE NOS [Concomitant]
     Active Substance: METHYLPREDNISOLONE
  3. VINCRISTINE SULFATE. [Suspect]
     Active Substance: VINCRISTINE SULFATE
     Indication: ACUTE LYMPHOCYTIC LEUKAEMIA
     Route: 042
  4. DEXAMETHASONE. [Concomitant]
     Active Substance: DEXAMETHASONE
  5. L-ASPARAGINASE [Concomitant]
     Active Substance: ASPARAGINASE
  6. PREDNISONE. [Concomitant]
     Active Substance: PREDNISONE
  7. HYDROCORTISONE. [Concomitant]
     Active Substance: HYDROCORTISONE
  8. METHOTREXATE. [Concomitant]
     Active Substance: METHOTREXATE
  9. DOXORUBICIN HYDROCHLORIDE INJECTION [Concomitant]
     Active Substance: DOXORUBICIN HYDROCHLORIDE
  10. MERCAPTOPURINE. [Concomitant]
     Active Substance: MERCAPTOPURINE

REACTIONS (7)
  - Gait disturbance [Unknown]
  - Toxicity to various agents [Unknown]
  - Pain in extremity [Unknown]
  - Polyneuropathy [Unknown]
  - Muscular weakness [Unknown]
  - Neuropathy peripheral [Unknown]
  - Back pain [Unknown]
